FAERS Safety Report 24858566 (Version 1)
Quarter: 2025Q1

REPORT INFORMATION
  Report Type: Report from Study
  Country: US (occurrence: US)
  Receive Date: 20250117
  Receipt Date: 20250117
  Transmission Date: 20250408
  Serious: No
  Sender: ACCORD
  Company Number: US-Accord-450828

PATIENT
  Sex: Male

DRUGS (1)
  1. CLOZAPINE [Suspect]
     Active Substance: CLOZAPINE
     Indication: Product used for unknown indication
     Dosage: 300MG IN MORNING, 500MG AT NIGHT.?TOTAL 800MG/DAILY

REACTIONS (2)
  - COVID-19 [Unknown]
  - Investigation noncompliance [Unknown]
